FAERS Safety Report 23776351 (Version 3)
Quarter: 2024Q2

REPORT INFORMATION
  Report Type: Spontaneous
  Country: IT (occurrence: IT)
  Receive Date: 20240424
  Receipt Date: 20240513
  Transmission Date: 20240716
  Serious: Yes (Other)
  Sender: FDA-Public Use
  Company Number: IT-BEIGENE-BGN-2024-006055

PATIENT

DRUGS (7)
  1. BRUKINSA [Suspect]
     Active Substance: ZANUBRUTINIB
     Indication: Marginal zone lymphoma
     Dosage: 160 MILLIGRAM, BID
     Dates: start: 202402
  2. BRUKINSA [Suspect]
     Active Substance: ZANUBRUTINIB
     Indication: Non-Hodgkin^s lymphoma
  3. NEBIVOLOL [Concomitant]
     Active Substance: NEBIVOLOL
     Dosage: 5 MILLIGRAM (1/2 TABLET AT 8:00 A.M. AND 1/2 TABLET AT 8:00 P.M)
  4. ZOFENOPRIL [Concomitant]
     Active Substance: ZOFENOPRIL
     Dosage: 1/2 TABLET AT 8:00 A.M.
  5. PANTOPRAZOLE [Concomitant]
     Active Substance: PANTOPRAZOLE
     Dosage: 20 MILLIGRAM (1 TABLET 30 MINUTES BEFORE BREAKFAST AS NEEDED)
  6. POTASSIUM CHLORIDE [Concomitant]
     Active Substance: POTASSIUM CHLORIDE
     Dosage: 600 MILLIGRAM (1 TABLET PER DAY)
  7. ACYCLOVIR [Concomitant]
     Active Substance: ACYCLOVIR
     Dosage: 400 MILLIGRAM (1 TABLET AT 8:00 A.M. AND 8:00 P.M.)

REACTIONS (1)
  - Interstitial lung disease [Unknown]

NARRATIVE: CASE EVENT DATE: 20240321
